FAERS Safety Report 9065574 (Version 2)
Quarter: 2013Q1

REPORT INFORMATION
  Report Type: Report from Study
  Country: DE (occurrence: DE)
  Receive Date: 20130131
  Receipt Date: 20130208
  Transmission Date: 20140127
  Serious: Yes (Hospitalization)
  Sender: FDA-Public Use
  Company Number: DE-BRISTOL-MYERS SQUIBB COMPANY-16243727

PATIENT
  Age: 60 Year
  Sex: Male
  Weight: 85 kg

DRUGS (5)
  1. ERBITUX SOLN FOR INF [Suspect]
     Indication: COLORECTAL CANCER METASTATIC
     Dosage: FREUENCY:ONCE, FOLLOWED BY 500MG:20JUL2011+(250MG/M2)WK. LAST DOSE:14SEP11(56DAYS).
     Route: 042
     Dates: start: 20110713, end: 20110914
  2. IRINOTECAN HCL [Concomitant]
     Indication: COLORECTAL CANCER METASTATIC
     Dosage: 1DF:17 (120MG/M2)
     Route: 042
     Dates: start: 20110713, end: 20110914
  3. EUTHYROX [Concomitant]
     Indication: THYROIDECTOMY
     Route: 048
     Dates: start: 20090902
  4. CORTICOSTEROID [Concomitant]
     Indication: PREMEDICATION
     Route: 042
     Dates: start: 20110713, end: 20110720
  5. ERBITUX [Concomitant]
     Indication: PROPHYLAXIS
     Dosage: FORMULATION: CREAM

REACTIONS (2)
  - Intestinal haemorrhage [Recovered/Resolved with Sequelae]
  - Anaemia [Not Recovered/Not Resolved]
